FAERS Safety Report 6439462-7 (Version None)
Quarter: 2009Q4

REPORT INFORMATION
  Report Type: 
  Country: None (occurrence: None)
  Receive Date: 20091113
  Receipt Date: 20091104
  Transmission Date: 20100525
  Serious: No
  Sender: FDA-Public Use
  Company Number: US-JNJFOC-20091101911

PATIENT
  Sex: Male
  Weight: 89.81 kg

DRUGS (8)
  1. DURAGESIC-100 [Suspect]
     Indication: BACK PAIN
     Dosage: NDC: 50458-093
     Route: 062
     Dates: start: 20091001, end: 20091001
  2. CYMBALTA [Concomitant]
     Indication: ANXIETY
     Route: 048
  3. LUNESTA [Concomitant]
     Indication: SLEEP DISORDER THERAPY
     Route: 048
  4. VENTOLIN [Concomitant]
     Indication: ASTHMA
     Route: 055
  5. SEROVIT [Concomitant]
     Indication: ASTHMA
     Route: 055
  6. VICODIN [Concomitant]
     Indication: PAIN
     Dosage: 5/500 MG - AS NEEDED
     Route: 048
  7. CELEBREX [Concomitant]
     Indication: PAIN
     Route: 048
  8. RITALIN [Concomitant]
     Indication: HEAD INJURY
     Route: 048

REACTIONS (4)
  - DYSPNOEA [None]
  - INAPPROPRIATE SCHEDULE OF DRUG ADMINISTRATION [None]
  - MOOD ALTERED [None]
  - THERAPEUTIC RESPONSE INCREASED [None]
